FAERS Safety Report 6191994-5 (Version None)
Quarter: 2009Q2

REPORT INFORMATION
  Report Type: 
  Country: None (occurrence: None)
  Receive Date: 20090515
  Receipt Date: 20090507
  Transmission Date: 20091009
  Serious: Yes (Disabling)
  Sender: FDA-Public Use
  Company Number: B0568065A

PATIENT
  Sex: Male

DRUGS (3)
  1. LAMICTIN [Suspect]
     Indication: BIPOLAR DISORDER
     Route: 065
     Dates: start: 20081001
  2. CIPRALEX [Concomitant]
  3. RISPERDAL [Concomitant]
     Dosage: 1MG AT NIGHT

REACTIONS (1)
  - RETINAL DETACHMENT [None]
